FAERS Safety Report 15147012 (Version 2)
Quarter: 2018Q3

REPORT INFORMATION
  Report Type: Report from Study
  Country: None (occurrence: US)
  Receive Date: 20180716
  Receipt Date: 20180821
  Transmission Date: 20181010
  Serious: Yes (Other)
  Sender: FDA-Public Use
  Company Number: US-ABBVIE-18K-163-2416570-00

PATIENT
  Age: 52 Year
  Sex: Female

DRUGS (1)
  1. HUMIRA [Suspect]
     Active Substance: ADALIMUMAB
     Indication: RHEUMATOID ARTHRITIS
     Route: 058
     Dates: start: 20171222, end: 20180801

REACTIONS (4)
  - Drooling [Not Recovered/Not Resolved]
  - Clostridium difficile infection [Recovering/Resolving]
  - Systemic lupus erythematosus [Unknown]
  - Stress at work [Unknown]

NARRATIVE: CASE EVENT DATE: 2018
